FAERS Safety Report 12071808 (Version 2)
Quarter: 2016Q1

REPORT INFORMATION
  Report Type: Report from Study
  Country: ES (occurrence: ES)
  Receive Date: 20160212
  Receipt Date: 20160322
  Transmission Date: 20160526
  Serious: Yes (Death, Hospitalization)
  Sender: FDA-Public Use
  Company Number: ES-ROCHE-1691125

PATIENT
  Age: 45 Year
  Sex: Female

DRUGS (8)
  1. FLUOROURACIL. [Suspect]
     Active Substance: FLUOROURACIL
     Indication: COLORECTAL CANCER METASTATIC
     Dosage: MOST RECENT DOSE RECEIVED ON 27/NOV/2015. NUMBER OF TREATMENT CYCLE RECEIVED WAS 1
     Route: 042
     Dates: start: 20151127, end: 20151207
  2. NEUPOGEN [Concomitant]
     Active Substance: FILGRASTIM
     Indication: PROPHYLAXIS
     Route: 058
  3. BEVACIZUMAB [Suspect]
     Active Substance: BEVACIZUMAB
     Indication: COLORECTAL CANCER METASTATIC
     Dosage: MOST RECENT DOSE RECEIVED ON 27/NOV/2015. NUMBER OF TREATMENT CYCLE RECEIVED WAS 1
     Route: 042
     Dates: start: 20151127, end: 20151207
  4. EUTHYROX [Concomitant]
     Active Substance: LEVOTHYROXINE SODIUM
     Indication: HYPOTHYROIDISM
     Route: 048
  5. OXALIPLATIN. [Suspect]
     Active Substance: OXALIPLATIN
     Indication: COLORECTAL CANCER METASTATIC
     Dosage: MOST RECENT DOSE RECEIVED ON 27/NOV/2015. NUMBER OF TREATMENT CYCLE RECEIVED WAS 1
     Route: 042
     Dates: start: 20151127, end: 20151207
  6. IRINOTECAN [Suspect]
     Active Substance: IRINOTECAN
     Indication: COLORECTAL CANCER METASTATIC
     Dosage: MOST RECENT DOSE RECEIVED ON 27/NOV/2015. NUMBER OF TREATMENT CYCLE RECEIVED WAS 1
     Route: 042
     Dates: start: 20151127, end: 20151207
  7. FOLINIC ACID [Suspect]
     Active Substance: LEUCOVORIN
     Indication: COLORECTAL CANCER METASTATIC
     Dosage: MOST RECENT DOSE RECEIVED ON 27/NOV/2015. NUMBER OF TREATMENT CYCLE RECEIVED WAS 1
     Route: 042
     Dates: start: 20151127, end: 20151207
  8. ENALAPRIL [Concomitant]
     Active Substance: ENALAPRIL
     Indication: HYPERTENSION
     Route: 048
     Dates: start: 20151203

REACTIONS (1)
  - Intestinal obstruction [Fatal]

NARRATIVE: CASE EVENT DATE: 20151205
